FAERS Safety Report 16065400 (Version 1)
Quarter: 2019Q1

REPORT INFORMATION
  Report Type: Spontaneous
  Country: US (occurrence: US)
  Receive Date: 20190313
  Receipt Date: 20190313
  Transmission Date: 20190418
  Serious: No
  Sender: FDA-Public Use
  Company Number: US-ADAAP-201900040

PATIENT
  Age: 6 Decade
  Sex: Male
  Weight: 118 kg

DRUGS (2)
  1. NETSPOT [Suspect]
     Active Substance: DOTATATE GALLIUM GA-68
     Indication: POSITRON EMISSION TOMOGRAM
     Route: 042
     Dates: start: 20190220, end: 20190220
  2. READI-CAT (BARIUM) [Concomitant]
     Indication: GASTROINTESTINAL SCAN
     Route: 048
     Dates: start: 20190220, end: 20190220

REACTIONS (1)
  - Nausea [Recovered/Resolved]

NARRATIVE: CASE EVENT DATE: 20190220
